FAERS Safety Report 9397743 (Version 2)
Quarter: 2013Q3

REPORT INFORMATION
  Report Type: Report from Study
  Country: US (occurrence: US)
  Receive Date: 20130712
  Receipt Date: 20130801
  Transmission Date: 20140515
  Serious: Yes (Hospitalization)
  Sender: FDA-Public Use
  Company Number: US-CELGENEUS-163-21660-13071088

PATIENT
  Age: 73 Year
  Sex: Female
  Weight: 47.2 kg

DRUGS (16)
  1. ABRAXANE [Suspect]
     Indication: LARYNGEAL SQUAMOUS CELL CARCINOMA
     Route: 041
     Dates: start: 20130625, end: 2013
  2. CARBOPLATIN [Suspect]
     Indication: LARYNGEAL SQUAMOUS CELL CARCINOMA
     Route: 041
     Dates: start: 20130625, end: 2013
  3. PACKED RED BLOOD CELLS [Concomitant]
     Indication: TRANSFUSION
     Dosage: 2 UNITS
     Route: 041
     Dates: start: 20130626, end: 20130626
  4. MICAFUNGIN [Concomitant]
     Indication: LEUKOPENIA
     Dosage: 100 MILLIGRAM
     Route: 041
     Dates: start: 20130706, end: 20130720
  5. TYLENOL [Concomitant]
     Indication: PAIN
     Dosage: 2600 MILLIGRAM
     Route: 041
     Dates: start: 20130419
  6. ASPIRIN [Concomitant]
     Indication: PROPHYLAXIS
     Dosage: 81 MILLIGRAM
     Route: 048
     Dates: start: 20130419
  7. NEXIUM [Concomitant]
     Indication: DYSPEPSIA
     Dosage: 20 MILLIGRAM
     Route: 048
     Dates: start: 20130419
  8. HEPARIN [Concomitant]
     Indication: THROMBOSIS PROPHYLAXIS
     Dosage: 5000 UNITS
     Route: 058
     Dates: start: 20130710
  9. LEVOTHYROXINE [Concomitant]
     Indication: HYPOTHYROIDISM
     Dosage: 75 MICROGRAM
     Route: 048
     Dates: start: 20121203
  10. REMERON [Concomitant]
     Indication: DEPRESSION
     Dosage: 15 MILLIGRAM
     Route: 048
     Dates: start: 20130702
  11. ZOCOR [Concomitant]
     Indication: BLOOD CHOLESTEROL
     Dosage: 40 MILLIGRAM
     Route: 048
     Dates: start: 20130325
  12. MULTIVITAMINS [Concomitant]
     Indication: PROPHYLAXIS
     Dosage: 1 TABLET
     Route: 048
     Dates: start: 20121203
  13. MULTIVITAMINS [Concomitant]
     Indication: ROUTINE HEALTH MAINTENANCE
  14. LEVOPHED [Concomitant]
     Indication: HYPOTENSION
     Route: 065
  15. NORMAL SALINE [Concomitant]
     Indication: HYPOTENSION
     Route: 040
  16. OSMOLITE [Concomitant]
     Indication: PRODUCT USED FOR UNKNOWN INDICATION
     Route: 065

REACTIONS (2)
  - Pneumonia [Recovered/Resolved]
  - Sepsis [Recovered/Resolved]
